FAERS Safety Report 8212310-0 (Version None)
Quarter: 2012Q1

REPORT INFORMATION
  Report Type: 
  Country: None (occurrence: None)
  Receive Date: 20120315
  Receipt Date: 20120312
  Transmission Date: 20120608
  Serious: Yes (Hospitalization)
  Sender: FDA-Public Use
  Company Number: CA-ROCHE-1017527

PATIENT
  Age: 51 Year
  Sex: Male
  Weight: 91.5 kg

DRUGS (3)
  1. MAXERAN [Concomitant]
     Dates: start: 20111123
  2. VEMURAFENIB [Suspect]
     Indication: METASTATIC MALIGNANT MELANOMA
     Route: 048
     Dates: start: 20110815, end: 20111126
  3. VEMURAFENIB [Suspect]
     Route: 048
     Dates: start: 20111129

REACTIONS (1)
  - DEHYDRATION [None]
